FAERS Safety Report 20673316 (Version 1)
Quarter: 2022Q2

REPORT INFORMATION
  Report Type: Spontaneous
  Country: US (occurrence: None)
  Receive Date: 20220403
  Receipt Date: 20220403
  Transmission Date: 20220721
  Serious: Yes (Hospitalization)
  Sender: FDA-Public Use
  Company Number: None

PATIENT
  Age: 56 Year
  Sex: Male
  Weight: 117 kg

DRUGS (3)
  1. FLUPHENAZINE [Suspect]
     Active Substance: FLUPHENAZINE
     Indication: Bipolar I disorder
     Dosage: FREQUENCY : DAILY;?
     Route: 048
     Dates: start: 20210604, end: 20210717
  2. FLUPHENAZINE [Suspect]
     Active Substance: FLUPHENAZINE
     Route: 048
     Dates: start: 20210604, end: 20210717
  3. DIVALPROEX SODIUM [Suspect]
     Active Substance: DIVALPROEX SODIUM
     Indication: Bipolar I disorder

REACTIONS (6)
  - Parkinsonism [None]
  - Agitation [None]
  - Drooling [None]
  - Insomnia [None]
  - Dysphagia [None]
  - Aphasia [None]

NARRATIVE: CASE EVENT DATE: 20210717
